FAERS Safety Report 14715019 (Version 2)
Quarter: 2018Q2

REPORT INFORMATION
  Report Type: Spontaneous
  Country: US (occurrence: US)
  Receive Date: 20180404
  Receipt Date: 20180417
  Transmission Date: 20180711
  Serious: No
  Sender: FDA-Public Use
  Company Number: US-009507513-1804USA000906

PATIENT
  Sex: Female
  Weight: 57.14 kg

DRUGS (1)
  1. NEXPLANON [Suspect]
     Active Substance: ETONOGESTREL
     Indication: CONTRACEPTION
     Dosage: 1 IMPLANT, LEFT ARM, EVERY 3 YEARS
     Route: 059
     Dates: start: 201511

REACTIONS (9)
  - Migraine [Unknown]
  - Chromaturia [Unknown]
  - Poor quality sleep [Unknown]
  - Vaginal discharge [Unknown]
  - Chest pain [Unknown]
  - Decreased appetite [Unknown]
  - Dyspnoea [Unknown]
  - Menstruation irregular [Unknown]
  - Amenorrhoea [Unknown]

NARRATIVE: CASE EVENT DATE: 2015
